FAERS Safety Report 18259769 (Version 2)
Quarter: 2020Q3

REPORT INFORMATION
  Report Type: Spontaneous
  Country: US (occurrence: US)
  Receive Date: 20200912
  Receipt Date: 20200918
  Transmission Date: 20201103
  Serious: Yes (Life-Threatening, Hospitalization, Other)
  Sender: FDA-Public Use
  Company Number: NVSC2020US244931

PATIENT
  Age: 81 Year
  Sex: Male
  Weight: 67.1 kg

DRUGS (4)
  1. ADRENALINE [Concomitant]
     Active Substance: EPINEPHRINE
     Indication: PRODUCT USED FOR UNKNOWN INDICATION
     Route: 065
  2. ATROPINE. [Concomitant]
     Active Substance: ATROPINE
     Indication: PRODUCT USED FOR UNKNOWN INDICATION
     Route: 065
  3. DOPAMINE [Concomitant]
     Active Substance: DOPAMINE HYDROCHLORIDE
     Indication: PRODUCT USED FOR UNKNOWN INDICATION
     Dosage: GTT
     Route: 065
  4. LUTATHERA [Suspect]
     Active Substance: LUTETIUM OXODOTREOTIDE LU-177
     Indication: PANCREATIC NEUROENDOCRINE TUMOUR METASTATIC
     Dosage: 200 MCI (CYCLE 1)
     Route: 042
     Dates: start: 20200902

REACTIONS (14)
  - Cardiac arrest [Recovered/Resolved]
  - Bradycardia [Recovering/Resolving]
  - Arrhythmia [Unknown]
  - Paralysis [Unknown]
  - Acidosis [Unknown]
  - Hypotension [Unknown]
  - Tachycardia [Recovering/Resolving]
  - Hyperglycaemia [Recovering/Resolving]
  - Respiration abnormal [Recovering/Resolving]
  - Seizure [Recovered/Resolved]
  - Acute respiratory failure [Recovering/Resolving]
  - Hypoxia [Recovering/Resolving]
  - Urinary incontinence [Recovering/Resolving]
  - Heart rate decreased [Unknown]

NARRATIVE: CASE EVENT DATE: 20200902
